FAERS Safety Report 10145691 (Version 1)
Quarter: 2014Q2

REPORT INFORMATION
  Report Type: Spontaneous
  Country: US (occurrence: US)
  Receive Date: 20140501
  Receipt Date: 20140501
  Transmission Date: 20141212
  Serious: No
  Sender: FDA-Public Use
  Company Number: US-ABBVIE-14P-163-1205315-00

PATIENT
  Age: 67 Year
  Sex: Female
  Weight: 70.37 kg

DRUGS (15)
  1. CREON [Suspect]
     Indication: DYSPEPSIA
     Dosage: 1 TO 2 CAPSULES WITH MEALS.
     Dates: start: 20140130, end: 201402
  2. MOTILIUM [Concomitant]
     Indication: DYSPEPSIA
  3. SPIRONOLACTONE [Concomitant]
     Indication: RENAL DISORDER
  4. KLONOPIN [Concomitant]
     Indication: ESSENTIAL TREMOR
  5. CLOPIDOGREL [Concomitant]
     Indication: ANTICOAGULANT THERAPY
  6. LOSARTAN POTASSIUM [Concomitant]
     Indication: HYPERTENSION
  7. SIMVASTATIN [Concomitant]
     Indication: BLOOD CHOLESTEROL INCREASED
  8. ESTRACE [Concomitant]
     Indication: HORMONE THERAPY
  9. OMEPRAZOLE [Concomitant]
     Indication: GASTRIC DISORDER
  10. MIRALAX [Concomitant]
     Indication: CONSTIPATION
  11. JANUMET [Concomitant]
     Indication: DIABETES MELLITUS
  12. ISORDIL [Concomitant]
     Indication: CARDIAC DISORDER
  13. CARVEDILOL [Concomitant]
     Indication: CARDIAC DISORDER
  14. LEVOTHYROXINE [Concomitant]
     Indication: HYPOTHYROIDISM
  15. LEVALBUTEROL HCL [Concomitant]
     Indication: ASTHMA

REACTIONS (1)
  - Heart rate increased [Recovered/Resolved]
